FAERS Safety Report 24439164 (Version 1)
Quarter: 2024Q4

REPORT INFORMATION
  Report Type: Spontaneous
  Country: US (occurrence: None)
  Receive Date: 20241014
  Receipt Date: 20241014
  Transmission Date: 20250114
  Serious: Yes (Other)
  Sender: Public
  Company Number: None

PATIENT
  Age: 57 Year
  Sex: Female
  Weight: 72.9 kg

DRUGS (7)
  1. MOUNJARO [Suspect]
     Active Substance: TIRZEPATIDE
     Indication: Diabetes mellitus
     Dosage: OTHER FREQUENCY : ONCE WEEKLY;?
     Route: 058
     Dates: start: 20240512
  2. MOUNJARO [Suspect]
     Active Substance: TIRZEPATIDE
     Indication: Weight decreased
  3. Amlodipine 10 mg once daily [Concomitant]
     Dates: start: 20190204
  4. Atorvastatin 10 mg once daily [Concomitant]
     Dates: start: 20190204
  5. Levocetirizine 5 mg once daily [Concomitant]
     Dates: start: 20190410
  6. Famotidine 20 mg once daily [Concomitant]
     Dates: start: 20190410
  7. Omalizumab 300 mg q month [Concomitant]
     Dates: start: 20190601

REACTIONS (3)
  - Rash erythematous [None]
  - Pain of skin [None]
  - Sensitive skin [None]

NARRATIVE: CASE EVENT DATE: 20240601
